FAERS Safety Report 8432573-6 (Version None)
Quarter: 2012Q2

REPORT INFORMATION
  Report Type: 
  Country: None (occurrence: None)
  Receive Date: 20120613
  Receipt Date: 20120531
  Transmission Date: 20120825
  Serious: Yes (Life-Threatening, Hospitalization, Other)
  Sender: FDA-Public Use
  Company Number: FR-AMGEN-FRASP2011061724

PATIENT
  Age: 46 Year
  Sex: Female
  Weight: 53 kg

DRUGS (4)
  1. ACETAMINOPHEN [Concomitant]
     Indication: PAIN
     Dosage: 1 TO 3 G DAILY
     Route: 048
  2. ENBREL [Suspect]
     Dosage: 50 MG, WEEKLY
     Route: 058
     Dates: start: 19920901, end: 20111023
  3. KETOPROFEN [Concomitant]
     Indication: PAIN
     Dosage: 100 TO 200 MG DAILY
     Route: 048
  4. ENBREL [Suspect]
     Indication: PRODUCT USED FOR UNKNOWN INDICATION
     Dosage: 50 MG, WEEKLY
     Dates: end: 20110901

REACTIONS (4)
  - ENDOMETRIOSIS [None]
  - PERITONITIS BACTERIAL [None]
  - CLOSTRIDIAL INFECTION [None]
  - APPENDICITIS [None]
